FAERS Safety Report 24428264 (Version 1)
Quarter: 2024Q4

REPORT INFORMATION
  Report Type: Spontaneous
  Country: US (occurrence: US)
  Receive Date: 20241011
  Receipt Date: 20241011
  Transmission Date: 20250115
  Serious: Yes (Other)
  Sender: ORGANON
  Company Number: US-ORGANON-O2410USA000795

PATIENT

DRUGS (1)
  1. REMERON [Suspect]
     Active Substance: MIRTAZAPINE
     Dosage: UNK
     Route: 065
     Dates: start: 20240801

REACTIONS (4)
  - Seizure [Not Recovered/Not Resolved]
  - Suicidal ideation [Not Recovered/Not Resolved]
  - Postural orthostatic tachycardia syndrome [Not Recovered/Not Resolved]
  - Drug withdrawal syndrome [Not Recovered/Not Resolved]

NARRATIVE: CASE EVENT DATE: 20240101
